FAERS Safety Report 7085611-X (Version None)
Quarter: 2010Q4

REPORT INFORMATION
  Report Type: 
  Country: None (occurrence: None)
  Receive Date: 20101105
  Receipt Date: 20101025
  Transmission Date: 20110411
  Serious: Yes (Hospitalization)
  Sender: FDA-Public Use
  Company Number: FR-WYE-H07754209

PATIENT
  Sex: Female

DRUGS (6)
  1. INIPOMP [Suspect]
     Route: 048
     Dates: end: 20081031
  2. METHOTREXATE [Interacting]
     Dosage: 5040 MG OVERDOSE AMOUNT
     Route: 042
     Dates: start: 20081024, end: 20081024
  3. VALACYCLOVIR HYDROCHLORIDE [Concomitant]
     Route: 048
  4. PARACETAMOL [Concomitant]
     Dosage: ^AS REQUIRED^
     Route: 048
  5. PROZAC [Concomitant]
     Route: 048
  6. CALCIUM FOLINATE [Concomitant]
     Dosage: UNKNOWN
     Dates: start: 20081027

REACTIONS (5)
  - DRUG CLEARANCE DECREASED [None]
  - DRUG INTERACTION [None]
  - DRUG LEVEL INCREASED [None]
  - OVERDOSE [None]
  - RENAL FAILURE ACUTE [None]
